FAERS Safety Report 20694862 (Version 2)
Quarter: 2022Q2

REPORT INFORMATION
  Report Type: Report from Study
  Country: None (occurrence: BR)
  Receive Date: 20220411
  Receipt Date: 20220418
  Transmission Date: 20220720
  Serious: Yes (Life-Threatening)
  Sender: FDA-Public Use
  Company Number: BR-AKCEA THERAPEUTICS, INC.-2022IS003206

PATIENT
  Age: 52 Year
  Sex: Male
  Weight: 69.136 kg

DRUGS (3)
  1. TEGSEDI [Suspect]
     Active Substance: INOTERSEN SODIUM
     Indication: Hereditary neuropathic amyloidosis
     Route: 058
     Dates: start: 201701, end: 202201
  2. DEVICE [Suspect]
     Active Substance: DEVICE
  3. SPIRONOLACTONE [Concomitant]
     Active Substance: SPIRONOLACTONE
     Route: 065

REACTIONS (5)
  - Illness [Recovered/Resolved]
  - Pain [Recovered/Resolved]
  - Syncope [Recovered/Resolved]
  - Functional gastrointestinal disorder [Recovered/Resolved]
  - Off label use [Recovered/Resolved]

NARRATIVE: CASE EVENT DATE: 20211101
